FAERS Safety Report 12668845 (Version 3)
Quarter: 2019Q3

REPORT INFORMATION
  Report Type: Report from Study
  Country: US (occurrence: US)
  Receive Date: 20160819
  Receipt Date: 20190903
  Transmission Date: 20191004
  Serious: Yes (Other)
  Sender: FDA-Public Use
  Company Number: US-JNJFOC-20160330185

PATIENT
  Sex: Female

DRUGS (9)
  1. COMPAZINE [Concomitant]
     Active Substance: PROCHLORPERAZINE MALEATE
  2. IMBRUVICA [Suspect]
     Active Substance: IBRUTINIB
     Indication: CHRONIC LYMPHOCYTIC LEUKAEMIA
     Route: 048
     Dates: start: 20160310, end: 20160515
  3. CELEXA [Concomitant]
     Active Substance: CITALOPRAM HYDROBROMIDE
  4. IMBRUVICA [Suspect]
     Active Substance: IBRUTINIB
     Route: 048
     Dates: start: 201603
  5. DESFERAL [Concomitant]
     Active Substance: DEFEROXAMINE MESYLATE
  6. IMBRUVICA [Suspect]
     Active Substance: IBRUTINIB
     Route: 048
     Dates: start: 20160310, end: 20160515
  7. ATIVAN [Concomitant]
     Active Substance: LORAZEPAM
  8. IMBRUVICA [Suspect]
     Active Substance: IBRUTINIB
     Indication: LYMPHOCYTIC LYMPHOMA
     Route: 048
     Dates: start: 20160516, end: 20160609
  9. CITALOPRAM [Suspect]
     Active Substance: CITALOPRAM HYDROBROMIDE
     Indication: PRODUCT USED FOR UNKNOWN INDICATION
     Dosage: 20 MG, NIGHTLY
     Route: 065

REACTIONS (12)
  - Neutrophil count decreased [Not Recovered/Not Resolved]
  - Blood iron decreased [Unknown]
  - Dental caries [Unknown]
  - Post procedural oedema [Unknown]
  - Platelet count decreased [Not Recovered/Not Resolved]
  - Erythema [Unknown]
  - Contusion [Unknown]
  - Haemoglobin decreased [Not Recovered/Not Resolved]
  - Epistaxis [Unknown]
  - Serum ferritin increased [Recovering/Resolving]
  - Haematuria [Not Recovered/Not Resolved]
  - White blood cell count decreased [Not Recovered/Not Resolved]

NARRATIVE: CASE EVENT DATE: 2016
